FAERS Safety Report 4683916-0 (Version None)
Quarter: 2005Q2

REPORT INFORMATION
  Report Type: 
  Country: None (occurrence: None)
  Receive Date: 20050607
  Receipt Date: 20050526
  Transmission Date: 20051028
  Serious: Yes (Other)
  Sender: FDA-Public Use
  Company Number: FR-ROCHE-405945

PATIENT
  Age: 50 Year
  Sex: Female

DRUGS (2)
  1. APRANAX [Suspect]
     Indication: TENDON RUPTURE
     Route: 065
  2. TRAMADOL HCL [Concomitant]

REACTIONS (5)
  - ARTHRITIS [None]
  - DYSPNOEA [None]
  - INTERSTITIAL LUNG DISEASE [None]
  - LEUKOCYTOCLASTIC VASCULITIS [None]
  - RAYNAUD'S PHENOMENON [None]
